FAERS Safety Report 8298304-8 (Version None)
Quarter: 2012Q2

REPORT INFORMATION
  Report Type: 
  Country: None (occurrence: None)
  Receive Date: 20120419
  Receipt Date: 20120404
  Transmission Date: 20120825
  Serious: Yes (Hospitalization)
  Sender: FDA-Public Use
  Company Number: PHFR2012IE002118

PATIENT
  Sex: Male

DRUGS (2)
  1. ANTIHYPERTENSIVE DRUGS [Concomitant]
     Dosage: UNK
  2. CLOZARIL [Suspect]
     Indication: SCHIZOPHRENIA
     Dosage: 250MG AM AND  450MG PM
     Route: 048
     Dates: start: 19950529

REACTIONS (6)
  - CONSTIPATION [None]
  - C-REACTIVE PROTEIN INCREASED [None]
  - SOCIAL AVOIDANT BEHAVIOUR [None]
  - WHITE BLOOD CELL COUNT INCREASED [None]
  - MALAISE [None]
  - SCHIZOPHRENIA [None]
